FAERS Safety Report 9925513 (Version 1)
Quarter: 2014Q1

REPORT INFORMATION
  Report Type: Spontaneous
  Country: US (occurrence: None)
  Receive Date: 20140225
  Receipt Date: 20140225
  Transmission Date: 20141002
  Serious: Yes (Hospitalization)
  Sender: FDA-Public Use
  Company Number: None

PATIENT
  Age: 70 Year
  Sex: Male
  Weight: 97.2 kg

DRUGS (1)
  1. PRADAXA 150 MG BOEHRINGER INGELHEIM [Suspect]
     Indication: ATRIAL FIBRILLATION
     Route: 048

REACTIONS (4)
  - Upper gastrointestinal haemorrhage [None]
  - Haematemesis [None]
  - Abdominal pain [None]
  - Hypovolaemic shock [None]
